FAERS Safety Report 10219219 (Version 1)
Quarter: 2014Q2

REPORT INFORMATION
  Report Type: Spontaneous
  Country: NL (occurrence: NL)
  Receive Date: 20140605
  Receipt Date: 20140605
  Transmission Date: 20141212
  Serious: Yes (Other)
  Sender: FDA-Public Use
  Company Number: NL-SA-2014SA071303

PATIENT
  Age: 2 Year
  Sex: Male
  Weight: 11.5 kg

DRUGS (5)
  1. MYOZYME [Suspect]
     Indication: GLYCOGEN STORAGE DISEASE TYPE II
     Route: 042
     Dates: start: 20120928
  2. SULFAMETHOXAZOLE/TRIMETHOPRIM [Concomitant]
     Indication: PROPHYLAXIS
     Dates: start: 20120913
  3. METHOTREXATE [Concomitant]
     Indication: IMMUNOSUPPRESSANT DRUG THERAPY
     Dosage: 0.5 MG/KG
     Dates: start: 20120913
  4. ESOMEPRAZOLE [Concomitant]
     Dates: start: 20130904
  5. SODIUM CHLORIDE [Concomitant]
     Dosage: 10 CC OF 0.9 % NACL
     Dates: start: 20131209

REACTIONS (9)
  - Hypoventilation [Recovered/Resolved]
  - Peripheral coldness [Recovered/Resolved]
  - Skin warm [Recovered/Resolved]
  - Hyperventilation [Recovered/Resolved]
  - Asthenopia [Unknown]
  - Malaise [Recovered/Resolved]
  - Chills [Recovered/Resolved]
  - Pyrexia [Recovered/Resolved]
  - Tachycardia [Recovered/Resolved]
